FAERS Safety Report 4613645-0 (Version None)
Quarter: 2005Q1

REPORT INFORMATION
  Report Type: 
  Country: None (occurrence: None)
  Receive Date: 20050315
  Receipt Date: 20030319
  Transmission Date: 20050727
  Serious: No
  Sender: FDA-Public Use
  Company Number: 5027

PATIENT
  Sex: Male

DRUGS (2)
  1. MIDAZOLAM [Suspect]
     Dosage: 5 MG
     Dates: start: 20011010
  2. PROPOFOL [Suspect]
     Dosage: 100 MG
     Dates: start: 20011010

REACTIONS (3)
  - AMNESIA [None]
  - CONFUSIONAL STATE [None]
  - ENCEPHALOPATHY [None]
